FAERS Safety Report 17807787 (Version 1)
Quarter: 2020Q2

REPORT INFORMATION
  Report Type: Spontaneous
  Country: CA (occurrence: CA)
  Receive Date: 20200520
  Receipt Date: 20200520
  Transmission Date: 20200714
  Serious: Yes (Life-Threatening, Disabling, Other)
  Sender: FDA-Public Use
  Company Number: CA-TEVA-2020-CA-1237110

PATIENT
  Age: 48 Year
  Weight: 61 kg

DRUGS (8)
  1. FLUOROURACIL. [Concomitant]
     Active Substance: FLUOROURACIL
  2. HYDROMORPH CONTIN [Concomitant]
     Active Substance: HYDROMORPHONE
  3. MAVIK [Concomitant]
     Active Substance: TRANDOLAPRIL
  4. IRINOTECAN HYDROCHLORIDE. [Suspect]
     Active Substance: IRINOTECAN HYDROCHLORIDE
     Indication: PRODUCT USED FOR UNKNOWN INDICATION
     Route: 042
  5. BEVACIZUMAB. [Suspect]
     Active Substance: BEVACIZUMAB
     Indication: COLORECTAL CANCER METASTATIC
     Route: 042
  6. ZOPICLONE [Concomitant]
     Active Substance: ZOPICLONE
  7. FRAGMIN [Concomitant]
     Active Substance: DALTEPARIN SODIUM
  8. LEUCOVORIN [FOLINIC ACID] [Concomitant]
     Active Substance: LEUCOVORIN

REACTIONS (5)
  - Hemiplegia [Unknown]
  - Memory impairment [Unknown]
  - Dysgraphia [Unknown]
  - Reading disorder [Unknown]
  - Cognitive disorder [Unknown]
